FAERS Safety Report 18068351 (Version 3)
Quarter: 2020Q3

REPORT INFORMATION
  Report Type: Spontaneous
  Country: GB (occurrence: GB)
  Receive Date: 20200724
  Receipt Date: 20200728
  Transmission Date: 20201103
  Serious: Yes (Other)
  Sender: FDA-Public Use
  Company Number: GB-BIOGEN-2018BI00548902

PATIENT
  Sex: Female

DRUGS (4)
  1. FAMPYRA [Suspect]
     Active Substance: DALFAMPRIDINE
     Indication: PRODUCT USED FOR UNKNOWN INDICATION
     Dosage: TWICE DAILY (PRESCRIPTION)
     Route: 050
     Dates: start: 2015
  2. FAMPYRA [Suspect]
     Active Substance: DALFAMPRIDINE
     Route: 050
  3. FAMPYRA [Suspect]
     Active Substance: DALFAMPRIDINE
     Route: 050
  4. FAMPYRA [Suspect]
     Active Substance: DALFAMPRIDINE
     Route: 050

REACTIONS (5)
  - Intentional product misuse [Unknown]
  - Multiple sclerosis relapse [Unknown]
  - Blindness transient [Unknown]
  - Mobility decreased [Unknown]
  - Multiple sclerosis [Unknown]
